FAERS Safety Report 20152773 (Version 1)
Quarter: 2021Q4

REPORT INFORMATION
  Report Type: Spontaneous
  Country: US (occurrence: US)
  Receive Date: 20211206
  Receipt Date: 20211206
  Transmission Date: 20220303
  Serious: Yes (Other)
  Sender: FDA-Public Use
  Company Number: US-PFIZER INC-2021623535

PATIENT
  Age: 58 Year
  Sex: Female
  Weight: 80.74 kg

DRUGS (1)
  1. CEFEPIME HYDROCHLORIDE [Suspect]
     Active Substance: CEFEPIME HYDROCHLORIDE
     Indication: Bacterial infection
     Dosage: UNK
     Route: 042

REACTIONS (1)
  - Rash [Unknown]
